FAERS Safety Report 7529424-0 (Version None)
Quarter: 2011Q2

REPORT INFORMATION
  Report Type: 
  Country: None (occurrence: None)
  Receive Date: 20110607
  Receipt Date: 20110531
  Transmission Date: 20111010
  Serious: Yes (Hospitalization)
  Sender: FDA-Public Use
  Company Number: JP-JNJFOC-20110507110

PATIENT
  Sex: Female

DRUGS (8)
  1. INVEGA [Suspect]
     Route: 048
  2. SEROQUEL XR [Suspect]
     Indication: PRODUCT USED FOR UNKNOWN INDICATION
     Route: 048
  3. PSYCHOTROPICS NOS [Concomitant]
     Route: 065
  4. INVEGA [Suspect]
     Indication: PRODUCT USED FOR UNKNOWN INDICATION
     Route: 048
  5. ALL OTHER THERAPEUTIC PRODUCTS [Suspect]
     Indication: PRODUCT USED FOR UNKNOWN INDICATION
     Route: 065
  6. IMPROMEN [Suspect]
     Route: 048
  7. IMPROMEN [Suspect]
     Indication: PRODUCT USED FOR UNKNOWN INDICATION
     Route: 048
  8. RISPERDAL [Suspect]
     Indication: PRODUCT USED FOR UNKNOWN INDICATION
     Route: 048

REACTIONS (5)
  - SOMNOLENCE [None]
  - INCREASED APPETITE [None]
  - DELUSION [None]
  - HYPERACUSIS [None]
  - HALLUCINATION [None]
